FAERS Safety Report 19923465 (Version 1)
Quarter: 2021Q4

REPORT INFORMATION
  Report Type: Spontaneous
  Country: US (occurrence: US)
  Receive Date: 20211006
  Receipt Date: 20211006
  Transmission Date: 20220303
  Serious: Yes (Hospitalization)
  Sender: FDA-Public Use
  Company Number: US-BOIRON-2021 00674

PATIENT
  Age: 30 Year
  Sex: Male

DRUGS (1)
  1. HOMEOPATHICS [Suspect]
     Active Substance: HOMEOPATHICS
     Indication: Haemorrhoids

REACTIONS (2)
  - Hospitalisation [Unknown]
  - Unevaluable event [Unknown]

NARRATIVE: CASE EVENT DATE: 20210901
